FAERS Safety Report 8618171-X (Version None)
Quarter: 2012Q3

REPORT INFORMATION
  Report Type: 
  Country: None (occurrence: None)
  Receive Date: 20120824
  Receipt Date: 20110823
  Transmission Date: 20120928
  Serious: No
  Sender: FDA-Public Use
  Company Number: US-ASTRAZENECA-2011SE40044

PATIENT
  Age: 41 Year
  Sex: Male

DRUGS (5)
  1. LISINOPRIL [Concomitant]
  2. SEROQUEL [Suspect]
     Route: 048
  3. TOPROL-XL [Suspect]
     Route: 048
  4. SYMBICORT [Suspect]
     Dosage: UNKNOWN STRENGTH AND FREQUENCY
     Route: 055
  5. SEROQUEL [Suspect]
     Route: 048

REACTIONS (4)
  - ILL-DEFINED DISORDER [None]
  - ORAL FUNGAL INFECTION [None]
  - UPPER RESPIRATORY FUNGAL INFECTION [None]
  - DRUG INEFFECTIVE [None]
